FAERS Safety Report 5818799-6 (Version None)
Quarter: 2008Q3

REPORT INFORMATION
  Report Type: 
  Country: None (occurrence: None)
  Receive Date: 20080723
  Receipt Date: 20080716
  Transmission Date: 20090109
  Serious: Yes (Hospitalization)
  Sender: FDA-Public Use
  Company Number: ES-JNJFOC-20080704634

PATIENT
  Age: 81 Year
  Sex: Female

DRUGS (2)
  1. RISPERDAL [Suspect]
     Indication: SENILE DEMENTIA
     Route: 048
  2. SEROPRAM [Suspect]
     Indication: SENILE DEMENTIA
     Route: 048

REACTIONS (1)
  - ACUTE RESPIRATORY FAILURE [None]
